FAERS Safety Report 7988980-9 (Version None)
Quarter: 2011Q4

REPORT INFORMATION
  Report Type: 
  Country: None (occurrence: None)
  Receive Date: 20111219
  Receipt Date: 20111209
  Transmission Date: 20120403
  Serious: No
  Sender: FDA-Public Use
  Company Number: PHHY2011BR61135

PATIENT
  Sex: Male

DRUGS (3)
  1. TRILEPTAL [Suspect]
     Indication: SURGERY
     Dosage: 2 DF, BID
     Route: 048
     Dates: start: 20110201
  2. TRILEPTAL [Suspect]
     Dosage: 1 DF, BID
     Route: 048
     Dates: start: 20110201
  3. TRILEPTAL [Suspect]
     Dosage: 1.5 DF, BID
     Route: 048

REACTIONS (1)
  - LACRIMAL DISORDER [None]
